FAERS Safety Report 16176879 (Version 1)
Quarter: 2019Q2

REPORT INFORMATION
  Report Type: Report from Study
  Country: US (occurrence: US)
  Receive Date: 20190409
  Receipt Date: 20190409
  Transmission Date: 20190711
  Serious: Yes (Hospitalization)
  Sender: FDA-Public Use
  Company Number: US-GILEAD-2019-0400764

PATIENT
  Sex: Male

DRUGS (1)
  1. SOFOSBUVIR W/VELPATASVIR/VOXILAPREVIR [Suspect]
     Active Substance: SOFOSBUVIR\VELPATASVIR\VOXILAPREVIR
     Indication: HEPATITIS C
     Dosage: UNK
     Route: 065

REACTIONS (1)
  - Mental disorder [Not Recovered/Not Resolved]

NARRATIVE: CASE EVENT DATE: 20190404
